FAERS Safety Report 9421165 (Version 1)
Quarter: 2013Q3

REPORT INFORMATION
  Report Type: Spontaneous
  Country: OM (occurrence: OM)
  Receive Date: 20130725
  Receipt Date: 20130725
  Transmission Date: 20140515
  Serious: Yes (Death, Hospitalization)
  Sender: FDA-Public Use
  Company Number: PHHY2013OM078190

PATIENT
  Age: 83 Year
  Sex: Female

DRUGS (10)
  1. HEPARIN [Suspect]
     Indication: ATRIAL FIBRILLATION
  2. TINZAPARIN [Suspect]
     Indication: DEEP VEIN THROMBOSIS
  3. ASPIRIN [Concomitant]
     Dosage: 75 MG, QD
  4. DIPYRIDAMOLE [Concomitant]
     Dosage: 75 MG, TID
  5. CEFTAZIDIME [Concomitant]
     Indication: LOWER RESPIRATORY TRACT INFECTION
  6. DOPAMINE [Concomitant]
  7. METRONIDAZOLE [Concomitant]
     Indication: PNEUMONIA ASPIRATION
  8. DIGOXIN [Concomitant]
     Indication: ATRIAL FIBRILLATION
  9. OMEPRAZOLE [Concomitant]
  10. AMIKACIN [Concomitant]

REACTIONS (12)
  - Death [Fatal]
  - Respiratory failure [Unknown]
  - Peripheral ischaemia [Unknown]
  - Skin discolouration [Unknown]
  - Oxygen saturation abnormal [Unknown]
  - Shock [Unknown]
  - Heparin-induced thrombocytopenia [Unknown]
  - Pulmonary artery thrombosis [Unknown]
  - Jugular vein thrombosis [Unknown]
  - Vena cava thrombosis [Unknown]
  - Melaena [Unknown]
  - Mucosal haemorrhage [Unknown]
